FAERS Safety Report 18958747 (Version 1)
Quarter: 2021Q1

REPORT INFORMATION
  Report Type: Report from Study
  Country: US (occurrence: US)
  Receive Date: 20210302
  Receipt Date: 20210302
  Transmission Date: 20210420
  Serious: Yes (Hospitalization)
  Sender: FDA-Public Use
  Company Number: US-JNJFOC-20210246570

PATIENT
  Age: 54 Year
  Sex: Female
  Weight: 100 kg

DRUGS (4)
  1. REVATIO [Concomitant]
     Active Substance: SILDENAFIL CITRATE
  2. WARFARIN [Concomitant]
     Active Substance: WARFARIN
  3. ILOPROST. [Suspect]
     Active Substance: ILOPROST
     Indication: PULMONARY HYPERTENSION
  4. AMBRISENTAN [Concomitant]
     Active Substance: AMBRISENTAN

REACTIONS (5)
  - Fall [Unknown]
  - Contusion [Unknown]
  - COVID-19 [Unknown]
  - Dizziness [Unknown]
  - Wound haemorrhage [Unknown]

NARRATIVE: CASE EVENT DATE: 20210203
